FAERS Safety Report 9624379 (Version 1)
Quarter: 2013Q4

REPORT INFORMATION
  Report Type: Spontaneous
  Country: JP (occurrence: JP)
  Receive Date: 20131015
  Receipt Date: 20131015
  Transmission Date: 20140711
  Serious: Yes (Hospitalization)
  Sender: FDA-Public Use
  Company Number: JP-GLAXOSMITHKLINE-B0896085A

PATIENT
  Age: 37 Year
  Sex: Male

DRUGS (7)
  1. LAMICTAL [Suspect]
     Indication: BIPOLAR DISORDER
     Dosage: 50MG PER DAY
     Route: 048
     Dates: start: 20111014
  2. LAMICTAL [Suspect]
     Indication: BIPOLAR DISORDER
     Dosage: 100MG TWICE PER DAY
     Route: 048
     Dates: start: 20111028
  3. EURODIN [Suspect]
     Indication: PRODUCT USED FOR UNKNOWN INDICATION
     Dosage: 1MG PER DAY
     Route: 048
     Dates: start: 20111104
  4. SILECE [Concomitant]
     Indication: DEPRESSION
     Dosage: 2MG PER DAY
     Route: 048
     Dates: start: 20110624
  5. PURSENNID [Concomitant]
     Indication: CONSTIPATION
     Dosage: 12MG PER DAY
     Route: 048
     Dates: start: 20110723, end: 20111020
  6. ABILIFY [Concomitant]
     Indication: BIPOLAR DISORDER
     Dosage: 6MG PER DAY
     Route: 048
     Dates: start: 20110819, end: 20111208
  7. RIVOTRIL [Concomitant]
     Dosage: .5MG PER DAY
     Route: 048
     Dates: start: 20111014, end: 20111110

REACTIONS (29)
  - Toxic epidermal necrolysis [Recovered/Resolved]
  - Conjunctival erosion [Unknown]
  - Skin necrosis [Unknown]
  - Epidermal necrosis [Unknown]
  - Skin necrosis [Unknown]
  - Blister [Unknown]
  - Rash pustular [Unknown]
  - Flushing [Unknown]
  - Oral mucosa erosion [Unknown]
  - Pyrexia [Unknown]
  - Malaise [Unknown]
  - Drug eruption [Unknown]
  - Erythema [Unknown]
  - Conjunctival hyperaemia [Unknown]
  - Ocular hyperaemia [Unknown]
  - Erythema of eyelid [Unknown]
  - Eye discharge [Unknown]
  - Eyelid erosion [Unknown]
  - Lip erosion [Unknown]
  - Rash macular [Unknown]
  - Generalised erythema [Unknown]
  - Perivascular dermatitis [Unknown]
  - Skin degenerative disorder [Unknown]
  - Rash [Unknown]
  - Acute generalised exanthematous pustulosis [Unknown]
  - Dermatitis [Unknown]
  - Fatigue [Unknown]
  - Ill-defined disorder [Unknown]
  - Skin disorder [Unknown]
